FAERS Safety Report 8691315 (Version 3)
Quarter: 2012Q4

REPORT INFORMATION
  Report Type: 
  Country: JP (occurrence: JP)
  Receive Date: 20120730
  Receipt Date: 20121015
  Transmission Date: 20130627
  Serious: Yes (Death, Other)
  Sender: FDA-Public Use
  Company Number: PHHY2012JP064630

PATIENT
  Age: 85 Year
  Sex: Female
  Weight: 41 kg

DRUGS (15)
  1. EXELON PATCH [Suspect]
     Indication: DEMENTIA WITH LEWY BODIES
     Dosage: 4.5 mg/ 24 Hrs
     Route: 062
     Dates: start: 20120601, end: 20120628
  2. EXELON PATCH [Suspect]
     Dosage: 9 mg,/ 24 Hrs
     Route: 062
     Dates: start: 20120629
  3. BAYASPIRIN [Suspect]
     Indication: CEREBRAL INFARCTION
     Dosage: UNK UKN, UNK
     Route: 048
  4. MENESIT [Concomitant]
     Indication: PARKINSON^S DISEASE
     Dosage: UNK UKN, UNK
     Route: 048
     Dates: start: 20120723
  5. PURSENNID [Concomitant]
     Indication: CONSTIPATION
     Dosage: UNK UKN, UNK
     Route: 048
     Dates: start: 20120723
  6. MYSLEE [Concomitant]
     Indication: INSOMNIA
     Dosage: UNK UKN, UNK
     Route: 048
     Dates: start: 20120522
  7. ROZEREM [Concomitant]
     Indication: INSOMNIA
     Dosage: UNK UKN, UNK
     Route: 048
     Dates: start: 20120425
  8. MODIODAL [Concomitant]
     Indication: SOMNOLENCE
     Dosage: UNK UKN, UNK
     Route: 048
     Dates: start: 20120510
  9. CAFFEINE AND SODIUM BENZOATE [Concomitant]
     Indication: SOMNOLENCE
     Dosage: UNK UKN, UNK
     Route: 048
     Dates: start: 20120425
  10. SOLDEM [Concomitant]
     Dosage: UNK UKN, UNK
     Route: 042
     Dates: start: 20120425
  11. DOPASTON [Concomitant]
     Indication: PARKINSON^S DISEASE
     Dosage: UNK UKN, UNK
     Route: 042
     Dates: start: 20120425
  12. GLUACETO 35 [Concomitant]
     Indication: MALNUTRITION
     Dosage: UNK UKN, UNK
     Route: 042
     Dates: start: 20120425
  13. BFLUID [Concomitant]
     Indication: MALNUTRITION
     Dosage: UNK UKN, UNK
     Route: 042
     Dates: start: 20120425
  14. C-PARA [Concomitant]
     Indication: MALNUTRITION
     Dosage: UNK UKN, UNK
     Route: 042
     Dates: start: 20120425
  15. PANTOSIN [Concomitant]
     Indication: MALNUTRITION
     Dosage: UNK UKN, UNK
     Route: 042
     Dates: start: 20120425

REACTIONS (4)
  - Anaemia [Fatal]
  - Blood pressure decreased [Unknown]
  - Oral administration complication [Unknown]
  - Hepatic function abnormal [Not Recovered/Not Resolved]
